FAERS Safety Report 11617306 (Version 5)
Quarter: 2017Q2

REPORT INFORMATION
  Report Type: Report from Study
  Country: US (occurrence: US)
  Receive Date: 20151009
  Receipt Date: 20170503
  Transmission Date: 20170829
  Serious: Yes (Hospitalization, Other)
  Sender: FDA-Public Use
  Company Number: US-JNJFOC-20151005589

PATIENT
  Age: 72 Year
  Sex: Female

DRUGS (32)
  1. LYRICA [Concomitant]
     Active Substance: PREGABALIN
  2. VITAMIN D [Concomitant]
     Active Substance: CHOLECALCIFEROL
     Route: 065
  3. UBIQUINOL [Concomitant]
     Active Substance: UBIQUINOL
  4. IMBRUVICA [Suspect]
     Active Substance: IBRUTINIB
     Indication: NON-HODGKIN^S LYMPHOMA
     Route: 048
     Dates: start: 20150109
  5. IMBRUVICA [Suspect]
     Active Substance: IBRUTINIB
     Indication: CHRONIC LYMPHOCYTIC LEUKAEMIA
     Route: 048
     Dates: start: 20150109
  6. TELMISARTAN. [Concomitant]
     Active Substance: TELMISARTAN
     Indication: BLOOD PRESSURE ABNORMAL
     Dates: start: 2014
  7. COENZYME Q10 [Concomitant]
     Active Substance: UBIDECARENONE
  8. IMBRUVICA [Suspect]
     Active Substance: IBRUTINIB
     Indication: CHRONIC LYMPHOCYTIC LEUKAEMIA
     Route: 048
     Dates: start: 20150106
  9. CARDIZEM [Suspect]
     Active Substance: DILTIAZEM HYDROCHLORIDE
     Indication: PRODUCT USED FOR UNKNOWN INDICATION
     Route: 065
     Dates: start: 20150904, end: 20150927
  10. ROBAXIN [Concomitant]
     Active Substance: METHOCARBAMOL
  11. HYDROCODONE [Concomitant]
     Active Substance: HYDROCODONE
  12. TOPROL XL [Concomitant]
     Active Substance: METOPROLOL SUCCINATE
  13. PROBIOTIC [Concomitant]
     Active Substance: PROBIOTICS NOS
  14. VITAMIN D3 [Concomitant]
     Active Substance: CHOLECALCIFEROL
  15. CAMELLIA SINENSIS [Concomitant]
     Active Substance: GREEN TEA LEAF
  16. COLACE [Concomitant]
     Active Substance: DOCUSATE SODIUM
  17. PREGABALIN. [Concomitant]
     Active Substance: PREGABALIN
  18. POLICOSANOL [Concomitant]
  19. ATARAX [Suspect]
     Active Substance: HYDROXYZINE HYDROCHLORIDE
     Indication: PRURITUS GENERALISED
     Route: 065
  20. OMEGA 3 [Concomitant]
     Active Substance: OMEGA-3 FATTY ACIDS
  21. IRON [Concomitant]
     Active Substance: IRON
  22. POTASSIUM [Concomitant]
     Active Substance: POTASSIUM
  23. IMBRUVICA [Suspect]
     Active Substance: IBRUTINIB
     Indication: NON-HODGKIN^S LYMPHOMA
     Route: 048
     Dates: start: 20150106
  24. LACTOBACILLUS ACIDOPHILUS [Concomitant]
     Active Substance: LACTOBACILLUS ACIDOPHILUS
  25. ALGINIC ACID [Concomitant]
     Active Substance: ALGINIC ACID
  26. RETINOL [Concomitant]
     Active Substance: RETINOL
  27. MAGNESIUM [Concomitant]
     Active Substance: MAGNESIUM
  28. BENADRYL [Concomitant]
     Active Substance: DIPHENHYDRAMINE HYDROCHLORIDE
  29. PROTONIX [Concomitant]
     Active Substance: PANTOPRAZOLE SODIUM
  30. BYSTOLIC [Concomitant]
     Active Substance: NEBIVOLOL HYDROCHLORIDE
  31. HYDROCODONE BITARTRATE W/PARACETAMOL [Concomitant]
     Active Substance: ACETAMINOPHEN\HYDROCODONE BITARTRATE
  32. LOSARTAN. [Concomitant]
     Active Substance: LOSARTAN

REACTIONS (14)
  - Paraesthesia [Recovered/Resolved]
  - Blood pressure increased [Recovered/Resolved]
  - Fatigue [Recovered/Resolved]
  - Asthenia [Recovered/Resolved]
  - Hyperhidrosis [Unknown]
  - Pruritus generalised [Recovering/Resolving]
  - Abdominal pain [Unknown]
  - Hypoaesthesia [Recovered/Resolved]
  - Vomiting [Unknown]
  - Blood sodium decreased [Recovered/Resolved]
  - Glaucoma [Unknown]
  - Weight increased [Unknown]
  - Back pain [Unknown]
  - Cataract [Unknown]

NARRATIVE: CASE EVENT DATE: 2015
